FAERS Safety Report 14818015 (Version 4)
Quarter: 2019Q4

REPORT INFORMATION
  Report Type: Spontaneous
  Country: GB (occurrence: GB)
  Receive Date: 20180427
  Receipt Date: 20191113
  Transmission Date: 20200122
  Serious: Yes (Other)
  Sender: FDA-Public Use
  Company Number: GB-AUROBINDO-AUR-APL-2018-022221

PATIENT
  Age: 17 Year
  Sex: Female
  Weight: 51 kg

DRUGS (5)
  1. LORATADINE. [Concomitant]
     Active Substance: LORATADINE
     Indication: PRODUCT USED FOR UNKNOWN INDICATION
     Dosage: 1 DF, QD
     Route: 065
     Dates: start: 20170614
  2. CO-AMOXICLAV [Suspect]
     Active Substance: AMOXICILLIN\CLAVULANATE POTASSIUM
     Indication: PRODUCT USED FOR UNKNOWN INDICATION
     Dosage: UNK
     Route: 065
     Dates: start: 20171008
  3. CROMOGLICATE SODIUM [Concomitant]
     Active Substance: CROMOLYN SODIUM
     Indication: PRODUCT USED FOR UNKNOWN INDICATION
     Dosage: 16 GTT DROPS, ONCE A DAY, 16 GTT, QD (2 DROPS TO EACH EYE)
     Route: 065
     Dates: start: 20170614
  4. CROMOGLICATE SODIUM [Concomitant]
     Active Substance: CROMOLYN SODIUM
     Dosage: 4 GTT DROPS, ONCE A DAY,2 DROPS TO EACH EYE
     Route: 065
     Dates: start: 20170614
  5. CLARITHROMYCIN. [Concomitant]
     Active Substance: CLARITHROMYCIN
     Indication: PRODUCT USED FOR UNKNOWN INDICATION
     Dosage: 1 DF, BID (1 DOSAGE FORMS,12 HR)
     Route: 065
     Dates: start: 20171008

REACTIONS (1)
  - Swelling face [Recovering/Resolving]

NARRATIVE: CASE EVENT DATE: 20171106
